FAERS Safety Report 8558867-1 (Version None)
Quarter: 2012Q3

REPORT INFORMATION
  Report Type: 
  Country: None (occurrence: None)
  Receive Date: 20120801
  Receipt Date: 20120730
  Transmission Date: 20120928
  Serious: Yes (Life-Threatening, Other)
  Sender: FDA-Public Use
  Company Number: PHHY2012BR066108

PATIENT
  Sex: Female

DRUGS (1)
  1. DIOVAN HCT [Suspect]
     Indication: BLOOD PRESSURE
     Dosage: 1 DF (160/12.5 MG), DAILY

REACTIONS (13)
  - BLOOD PRESSURE INCREASED [None]
  - NAUSEA [None]
  - DIZZINESS [None]
  - OEDEMA PERIPHERAL [None]
  - FEELING ABNORMAL [None]
  - DYSPNOEA [None]
  - MALAISE [None]
  - DIARRHOEA [None]
  - POLLAKIURIA [None]
  - CHEST PAIN [None]
  - HEADACHE [None]
  - SLEEP DISORDER [None]
  - ABDOMINAL DISCOMFORT [None]
